FAERS Safety Report 11326785 (Version 2)
Quarter: 2015Q3

REPORT INFORMATION
  Report Type: Spontaneous
  Country: US (occurrence: US)
  Receive Date: 20150731
  Receipt Date: 20150816
  Transmission Date: 20151125
  Serious: Yes (Death, Congenital Anomaly, Other)
  Sender: FDA-Public Use
  Company Number: US-APOTEX-2015AP008793

PATIENT

DRUGS (1)
  1. PAXIL [Suspect]
     Active Substance: PAROXETINE HYDROCHLORIDE
     Indication: PRODUCT USED FOR UNKNOWN INDICATION
     Dosage: UNK
     Route: 064
     Dates: start: 19990301, end: 20000930

REACTIONS (8)
  - Cardiomegaly [Fatal]
  - Patent ductus arteriosus [Unknown]
  - Cardiomyopathy [Fatal]
  - Ventricular septal defect [Unknown]
  - Foetal exposure during pregnancy [Unknown]
  - Aneurysm [Unknown]
  - Arrhythmia [Fatal]
  - Atrial septal defect [Unknown]
